FAERS Safety Report 6447583-8 (Version None)
Quarter: 2009Q4

REPORT INFORMATION
  Report Type: 
  Country: None (occurrence: None)
  Receive Date: 20091119
  Receipt Date: 20090416
  Transmission Date: 20100525
  Serious: Yes (Other)
  Sender: FDA-Public Use
  Company Number: US-AMGEN-KDL338321

PATIENT
  Sex: Female
  Weight: 73.5 kg

DRUGS (2)
  1. ENBREL [Suspect]
     Indication: RHEUMATOID ARTHRITIS
     Route: 058
     Dates: start: 20080101, end: 20090101
  2. METHOTREXATE [Suspect]
     Route: 048

REACTIONS (2)
  - HERPES ZOSTER OPHTHALMIC [None]
  - ORAL HERPES [None]
